FAERS Safety Report 7394908-5 (Version None)
Quarter: 2011Q2

REPORT INFORMATION
  Report Type: 
  Country: None (occurrence: None)
  Receive Date: 20110405
  Receipt Date: 20110329
  Transmission Date: 20111010
  Serious: Yes (Hospitalization)
  Sender: FDA-Public Use
  Company Number: B0709350A

PATIENT
  Sex: Female

DRUGS (1)
  1. REVOLADE [Suspect]
     Route: 048

REACTIONS (1)
  - PUBIS FRACTURE [None]
